FAERS Safety Report 7082725-5 (Version None)
Quarter: 2010Q4

REPORT INFORMATION
  Report Type: 
  Country: None (occurrence: None)
  Receive Date: 20101001
  Receipt Date: 20100603
  Transmission Date: 20110411
  Serious: No
  Sender: FDA-Public Use
  Company Number: 1000014270

PATIENT
  Age: 80 Year
  Sex: Male

DRUGS (8)
  1. BYSTOLIC [Suspect]
     Indication: ARRHYTHMIA
     Dosage: SEE IMAGE
     Route: 048
     Dates: start: 20091001, end: 20091101
  2. BYSTOLIC [Suspect]
     Indication: ARRHYTHMIA
     Dosage: SEE IMAGE
     Route: 048
     Dates: start: 20100522
  3. BYSTOLIC [Suspect]
     Indication: ARRHYTHMIA
     Dosage: 7.5 MG (7.5 MG, 1 IN 1 D), ORAL
     Route: 048
     Dates: start: 20091101, end: 20100521
  4. LISINOPRIL [Suspect]
     Indication: ARRHYTHMIA
  5. ATACAND [Suspect]
     Indication: ARRHYTHMIA
  6. ACCUPRIL [Suspect]
     Indication: ARRHYTHMIA
  7. ASPIRIN [Concomitant]
  8. LUNESTA [Concomitant]

REACTIONS (3)
  - ASTHENIA [None]
  - DIZZINESS [None]
  - HEADACHE [None]
